FAERS Safety Report 6269533-X (Version None)
Quarter: 2009Q3

REPORT INFORMATION
  Report Type: 
  Country: None (occurrence: None)
  Receive Date: 20090715
  Receipt Date: 20090424
  Transmission Date: 20100115
  Serious: No
  Sender: FDA-Public Use
  Company Number: US-TYCO HEALTHCARE/MALLINCKRODT-T200900934

PATIENT

DRUGS (5)
  1. OXYCODONE HCL [Suspect]
     Indication: BACK PAIN
     Dosage: UNK
     Dates: start: 20081201
  2. OXYCODONE HCL [Suspect]
     Dosage: UNK
     Dates: start: 20081201
  3. OXYCODONE [Concomitant]
     Dosage: UNK
     Dates: start: 20060101
  4. BENICAR [Concomitant]
     Dosage: 20 MG, QD
  5. AMBIEN [Concomitant]
     Dosage: 10 MG, QHS

REACTIONS (7)
  - ABDOMINAL DISCOMFORT [None]
  - DRUG INEFFECTIVE [None]
  - HAEMATOCHEZIA [None]
  - HEADACHE [None]
  - LIVER DISORDER [None]
  - LIVER FUNCTION TEST ABNORMAL [None]
  - NAUSEA [None]
